FAERS Safety Report 10060700 (Version 5)
Quarter: 2014Q2

REPORT INFORMATION
  Report Type: Spontaneous
  Country: JP (occurrence: JP)
  Receive Date: 20140404
  Receipt Date: 20140502
  Transmission Date: 20141212
  Serious: Yes (Hospitalization, Other)
  Sender: FDA-Public Use
  Company Number: JP-OTSUKA-JP-2014-12439

PATIENT
  Age: 81 Year
  Sex: Female
  Weight: 61 kg

DRUGS (17)
  1. SAMSCA [Suspect]
     Indication: CARDIAC FAILURE
     Dosage: 7.5 MG MILLIGRAM(S), DAILY DOSE
     Route: 048
     Dates: start: 20140207, end: 20140227
  2. ALDACTONE A [Suspect]
     Indication: PRODUCT USED FOR UNKNOWN INDICATION
     Dosage: 25 MG MILLIGRAM(S), DAILY DOSE
     Route: 048
     Dates: start: 20140131, end: 20140228
  3. LASIX [Concomitant]
     Indication: CARDIAC FAILURE
     Dosage: 0.4 ML/HR
     Route: 042
     Dates: start: 20140131, end: 20140202
  4. LASIX [Concomitant]
     Dosage: 0.5 ML/HR
     Route: 042
     Dates: start: 20140203, end: 20140206
  5. LASIX [Concomitant]
     Dosage: 0.4 ML/HR
     Route: 042
     Dates: start: 20140207, end: 20140207
  6. LASIX [Concomitant]
     Dosage: 0.3 ML/HR
     Route: 042
     Dates: start: 20140208, end: 20140209
  7. LASIX [Concomitant]
     Dosage: 0.2 ML/HR
     Route: 042
     Dates: start: 20140210, end: 20140210
  8. LASIX [Concomitant]
     Dosage: 0.1 ML/HR
     Route: 042
     Dates: start: 20140211, end: 20140212
  9. LASIX [Concomitant]
     Dosage: 0.5 ML/H + 20 MG BID
     Route: 042
     Dates: start: 20140225, end: 20140228
  10. AMLODIPINE [Concomitant]
     Dosage: 5 MG MILLIGRAM(S), DAILY DOSE
     Route: 048
     Dates: start: 20140131, end: 20140228
  11. BAYASPIRIN [Concomitant]
     Dosage: 100 MG MILLIGRAM(S), DAILY DOSE
     Route: 048
     Dates: start: 20140131
  12. PLAVIX [Concomitant]
     Dosage: 75 MG MILLIGRAM(S), DAILY DOSE
     Route: 048
     Dates: start: 20140131
  13. LASIX [Concomitant]
     Dosage: 20 MG MILLIGRAM(S), QAM
     Route: 048
     Dates: start: 20140212, end: 20140228
  14. MARZULENE [Concomitant]
     Dosage: 1.34 G GRAM(S), DAILY DOSE
     Route: 048
  15. SENNOSIDE [Concomitant]
     Dosage: 24 MG MILLIGRAM(S), DAILY DOSE
     Route: 048
  16. VANCOMYCIN [Concomitant]
     Dosage: UNK
     Route: 041
     Dates: start: 20140227, end: 20140310
  17. FINIBAX [Concomitant]
     Dosage: UNK
     Route: 041
     Dates: start: 20140227, end: 20140310

REACTIONS (4)
  - Hepatic function abnormal [Recovered/Resolved]
  - Renal impairment [Unknown]
  - Blood pressure decreased [Unknown]
  - Pyrexia [Unknown]
